FAERS Safety Report 4434568-6 (Version None)
Quarter: 2004Q3

REPORT INFORMATION
  Report Type: 
  Country: None (occurrence: None)
  Receive Date: 20040721
  Receipt Date: 20031030
  Transmission Date: 20050211
  Serious: Yes (Hospitalization, Other)
  Sender: FDA-Public Use
  Company Number: WAES 0310USA03392

PATIENT
  Age: 47 Year
  Sex: Female
  Weight: 83.0083 kg

DRUGS (5)
  1. VIOXX [Suspect]
     Indication: ARTHRALGIA
     Dosage: 25 MG/DAILY/PO
     Route: 048
     Dates: end: 20031101
  2. QUININESO4 [Suspect]
  3. PREMARIN [Concomitant]
  4. SYNTHROID [Concomitant]
  5. PREDNISONE [Concomitant]

REACTIONS (1)
  - HEPATITIS [None]
